FAERS Safety Report 5326062-5 (Version None)
Quarter: 2007Q2

REPORT INFORMATION
  Report Type: 
  Country: None (occurrence: None)
  Receive Date: 20070516
  Receipt Date: 20070508
  Transmission Date: 20071010
  Serious: Yes (Other)
  Sender: FDA-Public Use
  Company Number: US-AMGEN-US219876

PATIENT
  Sex: Female
  Weight: 98.7 kg

DRUGS (12)
  1. EPOGEN [Suspect]
     Indication: DIALYSIS
     Route: 065
     Dates: start: 20050101
  2. PROTONIX [Concomitant]
  3. PLAVIX [Concomitant]
  4. VALIUM [Concomitant]
  5. PHENERGAN HCL [Concomitant]
  6. VICODIN [Concomitant]
  7. THERAPEUTIC MULTIVITAMINS [Concomitant]
  8. HECTORAL [Concomitant]
  9. RENAGEL [Concomitant]
  10. INSULIN [Concomitant]
  11. PRAVACHOL [Concomitant]
  12. ASPIRIN [Concomitant]

REACTIONS (2)
  - PERITONITIS [None]
  - THERAPEUTIC RESPONSE DECREASED [None]
